FAERS Safety Report 9643017 (Version 5)
Quarter: 2014Q1

REPORT INFORMATION
  Report Type: Spontaneous
  Country: DE (occurrence: DE)
  Receive Date: 20131024
  Receipt Date: 20140130
  Transmission Date: 20141002
  Serious: Yes (Hospitalization)
  Sender: FDA-Public Use
  Company Number: DE-JNJFOC-20131011161

PATIENT
  Age: 66 Year
  Sex: Male
  Weight: 97.2 kg

DRUGS (6)
  1. ZYTIGA [Suspect]
     Indication: PROSTATE CANCER METASTATIC
     Dosage: 250 MG TABLET X 4
     Route: 048
     Dates: start: 20131012, end: 20131012
  2. ZYTIGA [Suspect]
     Indication: PROSTATE CANCER METASTATIC
     Route: 048
     Dates: start: 20131019
  3. PREDNISOLONE [Suspect]
     Indication: PROSTATE CANCER METASTATIC
     Dosage: ONE DOSE IN UNSPECIFIED TIME AND ONE DOSE INEVENING
     Route: 048
     Dates: start: 20131019
  4. PREDNISOLONE [Suspect]
     Indication: PROSTATE CANCER METASTATIC
     Route: 048
     Dates: start: 20131012, end: 20131012
  5. BELOC-ZOK MITE [Concomitant]
     Indication: HYPERTENSION
     Route: 048
  6. ACETYLSALICYLIC ACID [Concomitant]
     Indication: CARDIOVASCULAR EVENT PROPHYLAXIS
     Route: 048

REACTIONS (6)
  - Renal function test abnormal [Recovered/Resolved]
  - Blood glucose increased [Recovered/Resolved]
  - Hypertensive crisis [Recovered/Resolved]
  - Dyspnoea [Recovered/Resolved]
  - Chest pain [Recovered/Resolved]
  - Headache [Unknown]
